FAERS Safety Report 21058267 (Version 1)
Quarter: 2022Q3

REPORT INFORMATION
  Report Type: Report from Study
  Country: MX (occurrence: MX)
  Receive Date: 20220708
  Receipt Date: 20220708
  Transmission Date: 20221027
  Serious: Yes (Death)
  Sender: FDA-Public Use
  Company Number: MX-NOVARTISPH-NVSC2022MX155316

PATIENT
  Sex: Male
  Weight: 45 kg

DRUGS (1)
  1. ELTROMBOPAG OLAMINE [Suspect]
     Active Substance: ELTROMBOPAG OLAMINE
     Indication: Product used for unknown indication
     Dosage: 1 DOSAGE FORM, QD (25 MG)
     Route: 048
     Dates: start: 202102

REACTIONS (1)
  - Myelodysplastic syndrome [Fatal]
